FAERS Safety Report 6157802-3 (Version None)
Quarter: 2009Q2

REPORT INFORMATION
  Report Type: 
  Country: None (occurrence: None)
  Receive Date: 20090414
  Receipt Date: 20090408
  Transmission Date: 20091009
  Serious: Yes (Death)
  Sender: FDA-Public Use
  Company Number: 2009003646

PATIENT
  Sex: Female

DRUGS (2)
  1. ACTIQ [Suspect]
     Dosage: Q4-8 HRS PRN, BU
     Route: 002
  2. OPIOID [Concomitant]

REACTIONS (5)
  - DRUG INEFFECTIVE [None]
  - ORAL DISORDER [None]
  - PRODUCT QUALITY ISSUE [None]
  - PRURITUS [None]
  - SOMNOLENCE [None]
